FAERS Safety Report 4528107-9 (Version None)
Quarter: 2004Q4

REPORT INFORMATION
  Report Type: 
  Country: None (occurrence: None)
  Receive Date: 20041130
  Receipt Date: 20040726
  Transmission Date: 20050328
  Serious: No
  Sender: FDA-Public Use
  Company Number: WAES 0407USA02291

PATIENT
  Sex: 0

DRUGS (2)
  1. ZETIA [Suspect]
     Dosage: PO
     Route: 048
  2. PRAVACHOL [Concomitant]

REACTIONS (2)
  - DIARRHOEA [None]
  - MUSCLE CRAMP [None]
